FAERS Safety Report 20661428 (Version 2)
Quarter: 2025Q2

REPORT INFORMATION
  Report Type: Spontaneous
  Country: US (occurrence: US)
  Receive Date: 20220401
  Receipt Date: 20250611
  Transmission Date: 20250716
  Serious: Yes (Death, Hospitalization, Other)
  Sender: AUROBINDO
  Company Number: US-MLMSERVICE-20220316-3434567-2

PATIENT
  Age: 74 Year
  Sex: Female

DRUGS (2)
  1. LINEZOLID [Suspect]
     Active Substance: LINEZOLID
     Indication: Perinephric abscess
     Route: 065
  2. LINEZOLID [Suspect]
     Active Substance: LINEZOLID
     Indication: Nocardiosis

REACTIONS (4)
  - Subdural haematoma [Fatal]
  - Toxicity to various agents [Fatal]
  - Thrombocytopenia [Unknown]
  - Acute kidney injury [Unknown]
